FAERS Safety Report 6356320-7 (Version None)
Quarter: 2009Q3

REPORT INFORMATION
  Report Type: 
  Country: None (occurrence: None)
  Receive Date: 20090915
  Receipt Date: 20090904
  Transmission Date: 20100115
  Serious: Yes (Other)
  Sender: FDA-Public Use
  Company Number: US-AVENTIS-200917952US

PATIENT
  Sex: Female

DRUGS (4)
  1. APIDRA [Suspect]
     Dosage: DOSE: 15 AM, 17 LUNCH, 17 PM
     Route: 058
  2. OPTICLIK (INSULIN INJECTION PEN) [Suspect]
  3. LANTUS [Concomitant]
     Dosage: DOSE: UNK
     Route: 058
  4. OPHTHALMOLOGICALS [Concomitant]
     Dosage: DOSE: UNK

REACTIONS (4)
  - CATARACT [None]
  - GLAUCOMA [None]
  - RETINAL DETACHMENT [None]
  - VISUAL IMPAIRMENT [None]
